FAERS Safety Report 11267343 (Version 4)
Quarter: 2015Q3

REPORT INFORMATION
  Report Type: Report from Study
  Country: NZ (occurrence: NZ)
  Receive Date: 20150713
  Receipt Date: 20150811
  Transmission Date: 20151125
  Serious: Yes (Death)
  Sender: FDA-Public Use
  Company Number: PHHY2015NZ084175

PATIENT
  Sex: Female
  Weight: 56 kg

DRUGS (2)
  1. MORPHINE [Concomitant]
     Active Substance: MORPHINE
     Indication: NEOPLASM MALIGNANT
     Dosage: PUMP
     Route: 058
     Dates: start: 201107, end: 201307
  2. CLOZARIL [Suspect]
     Active Substance: CLOZAPINE
     Indication: SCHIZOPHRENIA
     Dosage: UNK
     Route: 048
     Dates: start: 20140718

REACTIONS (4)
  - Lower respiratory tract infection [Fatal]
  - Respiratory failure [Fatal]
  - Multi-organ failure [Fatal]
  - Multimorbidity [Fatal]
